FAERS Safety Report 18980950 (Version 1)
Quarter: 2021Q1

REPORT INFORMATION
  Report Type: Spontaneous
  Country: HU (occurrence: HU)
  Receive Date: 20210308
  Receipt Date: 20210308
  Transmission Date: 20210420
  Serious: Yes (Other)
  Sender: FDA-Public Use
  Company Number: NVSC2021HU046535

PATIENT
  Age: 48 Year
  Sex: Female

DRUGS (7)
  1. OSSICA [Concomitant]
     Active Substance: IBANDRONATE SODIUM
     Indication: METASTASES TO BONE
     Dosage: 1 AMPOULE
     Route: 065
     Dates: start: 20191212
  2. ARILLA [Concomitant]
     Indication: PRODUCT USED FOR UNKNOWN INDICATION
     Dosage: 1 DF, QD (1 TABLET DAILY)
     Route: 065
     Dates: start: 20191212, end: 20201229
  3. EXEMESTAN [Concomitant]
     Active Substance: EXEMESTANE
     Indication: PRODUCT USED FOR UNKNOWN INDICATION
     Dosage: 1 DF, QD (2021)
     Route: 065
  4. KISQALI [Suspect]
     Active Substance: RIBOCICLIB
     Indication: INVASIVE DUCTAL BREAST CARCINOMA
     Dosage: 3 DF, QD (3 TABLETS DAILY)
     Route: 065
     Dates: start: 20191212, end: 20200109
  5. KISQALI [Suspect]
     Active Substance: RIBOCICLIB
     Dosage: 2 DF, QD (2 TABLETS DAILY)
     Route: 065
     Dates: start: 20200109, end: 20201229
  6. RESELIGO [Concomitant]
     Active Substance: GOSERELIN ACETATE
     Indication: PRODUCT USED FOR UNKNOWN INDICATION
     Dosage: 1 AMPOULE, EVERY 28 DAYS,1X
     Route: 065
     Dates: start: 20191212
  7. XGEVA [Concomitant]
     Active Substance: DENOSUMAB
     Indication: METASTASES TO BONE
     Dosage: EVERY 28 DAYS
     Route: 065
     Dates: start: 20200706

REACTIONS (11)
  - Metastases to eye [Unknown]
  - Sinus disorder [Unknown]
  - Atelectasis [Unknown]
  - Metastases to peritoneum [Unknown]
  - Lymphadenopathy [Unknown]
  - Ascites [Unknown]
  - Invasive ductal breast carcinoma [Unknown]
  - Pleural effusion [Unknown]
  - Breast cancer metastatic [Unknown]
  - Malignant neoplasm progression [Unknown]
  - Pneumothorax [Unknown]

NARRATIVE: CASE EVENT DATE: 20200314
